FAERS Safety Report 16124141 (Version 2)
Quarter: 2019Q2

REPORT INFORMATION
  Report Type: Report from Study
  Country: BR (occurrence: BR)
  Receive Date: 20190327
  Receipt Date: 20190405
  Transmission Date: 20190711
  Serious: Yes (Hospitalization, Other)
  Sender: FDA-Public Use
  Company Number: BR-JNJFOC-20190329916

PATIENT
  Age: 26 Year
  Sex: Male

DRUGS (2)
  1. GARDENAL [Concomitant]
     Active Substance: PHENOBARBITAL
     Indication: PRODUCT USED FOR UNKNOWN INDICATION
     Route: 065
  2. STELARA [Suspect]
     Active Substance: USTEKINUMAB
     Indication: CROHN^S DISEASE
     Route: 058
     Dates: start: 20180923

REACTIONS (3)
  - Crohn^s disease [Unknown]
  - Gastrointestinal infection [Unknown]
  - Anal fistula [Unknown]

NARRATIVE: CASE EVENT DATE: 201902
